FAERS Safety Report 11246369 (Version 1)
Quarter: 2015Q3

REPORT INFORMATION
  Report Type: Spontaneous
  Country: US (occurrence: None)
  Receive Date: 20150706
  Receipt Date: 20150706
  Transmission Date: 20151125
  Serious: Yes (Life-Threatening)
  Sender: FDA-Public Use
  Company Number: None

PATIENT
  Age: 52 Year
  Sex: Male
  Weight: 103 kg

DRUGS (29)
  1. PROTAMINE [Suspect]
     Active Substance: PROTAMINE
     Indication: HEPARIN NEUTRALISATION THERAPY
     Dosage: 40MG+10MG+10MG ONCE INTRAVENOUS
     Route: 042
  2. EMTRICITABINE-TENOFOVIR [Concomitant]
  3. LOPRESSOR TARTRATE [Concomitant]
  4. KLOR-CON [Concomitant]
     Active Substance: POTASSIUM CHLORIDE
  5. NEOSTIGMINE [Concomitant]
     Active Substance: NEOSTIGMINE
  6. BENAZEPRIL [Concomitant]
     Active Substance: BENAZEPRIL HYDROCHLORIDE
  7. FENTANYL. [Concomitant]
     Active Substance: FENTANYL
  8. ONDANSETRON [Concomitant]
     Active Substance: ONDANSETRON
  9. VANCOMYCIN [Concomitant]
     Active Substance: VANCOMYCIN
  10. PROVENTIL [Concomitant]
     Active Substance: ALBUTEROL
  11. ASA [Concomitant]
     Active Substance: ASPIRIN
  12. HEPARIN [Concomitant]
     Active Substance: HEPARIN SODIUM
  13. VECURONIUM [Concomitant]
     Active Substance: VECURONIUM BROMIDE
  14. SUCCINYLCHOLINE [Concomitant]
     Active Substance: SUCCINYLCHOLINE
  15. VASOPRESSIN. [Concomitant]
     Active Substance: VASOPRESSIN
  16. PROZAC [Concomitant]
     Active Substance: FLUOXETINE HYDROCHLORIDE
  17. LASIX [Concomitant]
     Active Substance: FUROSEMIDE
  18. WARFARIN [Concomitant]
     Active Substance: WARFARIN
  19. AMIODARONE [Concomitant]
     Active Substance: AMIODARONE
  20. ROCURONIUM [Concomitant]
     Active Substance: ROCURONIUM BROMIDE
  21. BENADRYL [Concomitant]
     Active Substance: DIPHENHYDRAMINE HYDROCHLORIDE
  22. DARUNAVIR [Concomitant]
     Active Substance: DARUNAVIR
  23. ADENOSINE. [Concomitant]
     Active Substance: ADENOSINE
  24. RITONAVIR. [Concomitant]
     Active Substance: RITONAVIR
  25. IODIXANOL [Concomitant]
     Active Substance: IODIXANOL
  26. EPHEDRINE. [Concomitant]
     Active Substance: EPHEDRINE
  27. SOLU-CORTEF [Concomitant]
     Active Substance: HYDROCORTISONE SODIUM SUCCINATE
  28. PHENYLEPHRINE [Concomitant]
     Active Substance: PHENYLEPHRINE\PHENYLEPHRINE HYDROCHLORIDE
  29. PROPOFOL. [Concomitant]
     Active Substance: PROPOFOL

REACTIONS (3)
  - Procedural hypotension [None]
  - Product quality issue [None]
  - Respiratory failure [None]

NARRATIVE: CASE EVENT DATE: 20150629
